FAERS Safety Report 9364539 (Version 4)
Quarter: 2013Q4

REPORT INFORMATION
  Report Type: Spontaneous
  Country: GB (occurrence: None)
  Receive Date: 20130619
  Receipt Date: 20131211
  Transmission Date: 20140711
  Serious: Yes (Hospitalization, Other)
  Sender: FDA-Public Use
  Company Number: 1747729

PATIENT
  Age: 74 Year
  Sex: Female
  Weight: 29.35 kg

DRUGS (6)
  1. CARBOPLATIN [Suspect]
     Indication: OVARIAN CANCER
     Dosage: 480 MG MILLIGRAM (3 DAYS) INTRAVENOUS DRIP
     Route: 041
     Dates: start: 20120704, end: 20121031
  2. PACLITAXEL [Suspect]
     Indication: OVARIAN CANCER
     Dosage: 440 MG MILLIGRAM (3 DAY) INTRAVENOUS DRIP
     Route: 041
     Dates: start: 20120913, end: 20121002
  3. APREPITANT [Concomitant]
  4. DEXAMETHASONE [Concomitant]
  5. ONDANSETRON [Concomitant]
  6. GLUCOSAMINE [Concomitant]

REACTIONS (5)
  - Skin odour abnormal [None]
  - Nausea [None]
  - Skin burning sensation [None]
  - Drug hypersensitivity [None]
  - Skin disorder [None]
